FAERS Safety Report 6887555-2 (Version None)
Quarter: 2010Q3

REPORT INFORMATION
  Report Type: 
  Country: None (occurrence: None)
  Receive Date: 20100730
  Receipt Date: 20100720
  Transmission Date: 20110219
  Serious: Yes (Other)
  Sender: FDA-Public Use
  Company Number: US-JNJFOC-20100700534

PATIENT
  Sex: Male
  Weight: 78.47 kg

DRUGS (10)
  1. REMICADE [Suspect]
     Indication: CROHN'S DISEASE
     Route: 042
  2. REMICADE [Suspect]
     Route: 042
  3. REMICADE [Suspect]
     Route: 042
  4. VITAMIN B-12 [Concomitant]
  5. FISH OIL [Concomitant]
  6. IRON [Concomitant]
  7. ROWASA [Concomitant]
  8. PROBIOTIC [Concomitant]
  9. LEVSIN [Concomitant]
  10. LIALDA [Concomitant]

REACTIONS (6)
  - INFUSION RELATED REACTION [None]
  - LIP SWELLING [None]
  - PARAESTHESIA [None]
  - PROSTATE CANCER [None]
  - PRURITUS [None]
  - SWOLLEN TONGUE [None]
